FAERS Safety Report 9586260 (Version 1)
Quarter: 2013Q4

REPORT INFORMATION
  Report Type: Spontaneous
  Country: CH (occurrence: CH)
  Receive Date: 20131003
  Receipt Date: 20131003
  Transmission Date: 20140711
  Serious: Yes (Hospitalization)
  Sender: FDA-Public Use
  Company Number: CH-BAYER-2013-115900

PATIENT
  Age: 33 Year
  Sex: Female
  Weight: 52.15 kg

DRUGS (1)
  1. MIRENA [Suspect]
     Indication: CONTRACEPTION
     Dosage: 20 MCG/24HR, CONT
     Route: 015
     Dates: start: 201109, end: 201212

REACTIONS (2)
  - Vulvovaginitis [Recovered/Resolved]
  - Lymphadenopathy [Not Recovered/Not Resolved]
